FAERS Safety Report 9408583 (Version 2)
Quarter: 2014Q1

REPORT INFORMATION
  Report Type: Spontaneous
  Country: US (occurrence: US)
  Receive Date: 20130718
  Receipt Date: 20140210
  Transmission Date: 20141002
  Serious: Yes (Hospitalization)
  Sender: FDA-Public Use
  Company Number: US-ASTELLAS-2013US005695

PATIENT
  Sex: Male
  Weight: 70 kg

DRUGS (1)
  1. VESICARE [Suspect]
     Indication: MICTURITION URGENCY
     Dosage: 10 MG, UID/QD
     Route: 048

REACTIONS (4)
  - Drug ineffective [Unknown]
  - Decubitus ulcer [Unknown]
  - Skin infection [Unknown]
  - Cardiac infection [Unknown]
